FAERS Safety Report 5904768-4 (Version None)
Quarter: 2008Q3

REPORT INFORMATION
  Report Type: 
  Country: None (occurrence: None)
  Receive Date: 20080909
  Receipt Date: 20080414
  Transmission Date: 20090109
  Serious: Yes (Hospitalization)
  Sender: FDA-Public Use
  Company Number: 163-20785-08041120

PATIENT
  Age: 55 Year
  Sex: Female
  Weight: 81 kg

DRUGS (27)
  1. THALOMID [Suspect]
     Indication: MULTIPLE MYELOMA
     Dosage: 100 MG, DAILY AT BEDTIME, ORAL ; 200 MG, ORAL
     Route: 048
     Dates: end: 20080212
  2. THALOMID [Suspect]
     Indication: MULTIPLE MYELOMA
     Dosage: 100 MG, DAILY AT BEDTIME, ORAL ; 200 MG, ORAL
     Route: 048
     Dates: start: 20050116
  3. DEXAMETHASONE TAB [Suspect]
     Indication: MULTIPLE MYELOMA
     Dosage: 20 MG, DAILY ON DAYS 1-4 EVERY 28 DAYS ; 40 MG
     Dates: end: 20071213
  4. DEXAMETHASONE TAB [Suspect]
     Indication: MULTIPLE MYELOMA
     Dosage: 20 MG, DAILY ON DAYS 1-4 EVERY 28 DAYS ; 40 MG
     Dates: start: 20050116
  5. VELCADE [Suspect]
     Indication: MULTIPLE MYELOMA
     Dosage: 1 MG/M2 ; 1 MG/M2
     Dates: end: 20070112
  6. VELCADE [Suspect]
     Indication: MULTIPLE MYELOMA
     Dosage: 1 MG/M2 ; 1 MG/M2
     Dates: start: 20050112
  7. CISPLATIN [Suspect]
     Indication: MULTIPLE MYELOMA
     Dosage: 7.5 MG/M2 ; 10 MG/M2
     Dates: end: 20051120
  8. CISPLATIN [Suspect]
     Indication: MULTIPLE MYELOMA
     Dosage: 7.5 MG/M2 ; 10 MG/M2
     Dates: start: 20050116
  9. ADRIAMYCIN PFS [Suspect]
     Indication: MULTIPLE MYELOMA
     Dosage: 7.5 MG/M2 ; 10 MG/M2
     Dates: end: 20051120
  10. ADRIAMYCIN PFS [Suspect]
     Indication: MULTIPLE MYELOMA
     Dosage: 7.5 MG/M2 ; 10 MG/M2
     Dates: start: 20050116
  11. CYCLOPHOSPHAMIDE [Suspect]
     Indication: MULTIPLE MYELOMA
     Dosage: 300 MG/M2 ;400 MG/M2
     Dates: end: 20051120
  12. CYCLOPHOSPHAMIDE [Suspect]
     Indication: MULTIPLE MYELOMA
     Dosage: 300 MG/M2 ;400 MG/M2
     Dates: start: 20050116
  13. ETOPOSIDE [Suspect]
     Indication: MULTIPLE MYELOMA
     Dosage: 30 MG/M2 ; 40 MG/M2
     Dates: end: 20051120
  14. ETOPOSIDE [Suspect]
     Indication: MULTIPLE MYELOMA
     Dosage: 30 MG/M2 ; 40 MG/M2
     Dates: start: 20050116
  15. MELPHALAN (MELPHALAN) [Suspect]
     Indication: MULTIPLE MYELOMA
     Dosage: 200 MG/M2 ; 200 MG/M2
     Dates: end: 20050607
  16. MELPHALAN (MELPHALAN) [Suspect]
     Indication: MULTIPLE MYELOMA
     Dosage: 200 MG/M2 ; 200 MG/M2
     Dates: start: 20050329
  17. PROTONIX (PANTOPRAZOLE) (TABLETS) [Concomitant]
  18. SYNTHROID (LEVOTHYROXINE SODIUM) (TABLETS) [Concomitant]
  19. WELLBUTRIN [Concomitant]
  20. SPIRONOLACTONE [Concomitant]
  21. ATIVAN [Concomitant]
  22. LEXAPRO [Concomitant]
  23. ARIXTRA [Concomitant]
  24. LEVAQUIN [Concomitant]
  25. FLAGYL [Concomitant]
  26. TRIAMCINOLONE ACETONIDE (TRIAMCINOLONE ACETONIDE) (CREAM) [Concomitant]
  27. HALCION (TRAIZOLAM) (TABLETS) [Concomitant]

REACTIONS (1)
  - SEPSIS [None]
